FAERS Safety Report 5343341-6 (Version None)
Quarter: 2007Q2

REPORT INFORMATION
  Report Type: 
  Country: None (occurrence: None)
  Receive Date: 20070501
  Receipt Date: 20070215
  Transmission Date: 20071010
  Serious: No
  Sender: FDA-Public Use
  Company Number: 200711006US

PATIENT
  Sex: Female

DRUGS (2)
  1. KETEK [Suspect]
     Indication: RESPIRATORY DISORDER
     Dosage: PO
     Route: 048
     Dates: start: 20070208, end: 20070213
  2. DIAZEPAM [Concomitant]

REACTIONS (1)
  - DRUG INEFFECTIVE [None]
